FAERS Safety Report 10489376 (Version 1)
Quarter: 2014Q4

REPORT INFORMATION
  Report Type: Spontaneous
  Country: GB (occurrence: GB)
  Receive Date: 20141002
  Receipt Date: 20141002
  Transmission Date: 20150528
  Serious: Yes (Hospitalization)
  Sender: FDA-Public Use
  Company Number: PHHY2014GB125984

PATIENT
  Age: 74 Year
  Sex: Male

DRUGS (2)
  1. ACETYLSALICYLIC ACID [Suspect]
     Active Substance: ASPIRIN
     Indication: ANTIPLATELET THERAPY
  2. CLOPIDOGREL [Suspect]
     Active Substance: CLOPIDOGREL BISULFATE
     Indication: ANTIPLATELET THERAPY

REACTIONS (11)
  - Haemoglobin decreased [Unknown]
  - Hydronephrosis [Unknown]
  - Haematuria [Unknown]
  - Renal impairment [Recovering/Resolving]
  - Haemodynamic instability [Unknown]
  - Urethral haemorrhage [Recovering/Resolving]
  - Renal failure [Unknown]
  - Urinary bladder haemorrhage [Unknown]
  - Abdominal distension [Unknown]
  - Wound complication [Recovering/Resolving]
  - Hypotension [Unknown]
